FAERS Safety Report 26176065 (Version 1)
Quarter: 2025Q4

REPORT INFORMATION
  Report Type: Spontaneous
  Country: JP (occurrence: JP)
  Receive Date: 20251218
  Receipt Date: 20251218
  Transmission Date: 20260117
  Serious: Yes (Congenital Anomaly, Other)
  Sender: GILEAD
  Company Number: JP-GILEAD-2025-0741306

PATIENT

DRUGS (2)
  1. VIREAD [Suspect]
     Active Substance: TENOFOVIR DISOPROXIL FUMARATE
     Indication: Hepatitis B
     Route: 064
  2. HEPATITIS B IMMUNE GLOBULIN [Concomitant]
     Active Substance: HUMAN HEPATITIS B VIRUS IMMUNE GLOBULIN

REACTIONS (2)
  - Noonan syndrome [Unknown]
  - Foetal exposure during pregnancy [Recovered/Resolved]
